FAERS Safety Report 13643752 (Version 2)
Quarter: 2017Q2

REPORT INFORMATION
  Report Type: Spontaneous
  Country: US (occurrence: US)
  Receive Date: 20170612
  Receipt Date: 20170619
  Transmission Date: 20170830
  Serious: No
  Sender: FDA-Public Use
  Company Number: US-SUNOVION-2017SUN002311

PATIENT

DRUGS (1)
  1. LATUDA [Suspect]
     Active Substance: LURASIDONE HYDROCHLORIDE
     Route: 048

REACTIONS (5)
  - Flank pain [Unknown]
  - Liver disorder [Unknown]
  - Depressed mood [Unknown]
  - Anxiety [Not Recovered/Not Resolved]
  - Back pain [Unknown]
